FAERS Safety Report 25754479 (Version 1)
Quarter: 2025Q3

REPORT INFORMATION
  Report Type: Spontaneous
  Country: US (occurrence: US)
  Receive Date: 20250903
  Receipt Date: 20250903
  Transmission Date: 20251020
  Serious: Yes (Life-Threatening, Hospitalization, Other)
  Sender: ALKEM
  Company Number: US-ALKEM LABORATORIES LIMITED-JP-ALKEM-2025-08961

PATIENT
  Age: 82 Year
  Sex: Female

DRUGS (1)
  1. METFORMIN HYDROCHLORIDE [Suspect]
     Active Substance: METFORMIN HYDROCHLORIDE
     Indication: Type 2 diabetes mellitus
     Route: 065

REACTIONS (8)
  - Euglycaemic diabetic ketoacidosis [Unknown]
  - Toxicity to various agents [Unknown]
  - Renal failure [Unknown]
  - Pancreatitis [Unknown]
  - Presyncope [Unknown]
  - Lactic acidosis [Unknown]
  - Asthenia [Unknown]
  - Vomiting [Unknown]
